FAERS Safety Report 21688598 (Version 1)
Quarter: 2022Q4

REPORT INFORMATION
  Report Type: Spontaneous
  Country: US (occurrence: US)
  Receive Date: 20221206
  Receipt Date: 20221206
  Transmission Date: 20230112
  Serious: No
  Sender: FDA-Public Use
  Company Number: US-009507513-2211USA009099

PATIENT
  Age: 78 Year
  Sex: Female

DRUGS (1)
  1. MOLNUPIRAVIR [Suspect]
     Active Substance: MOLNUPIRAVIR
     Indication: COVID-19 treatment
     Dosage: 800 MILLIGRAM, TWICE DAILY
     Route: 048
     Dates: start: 20221123

REACTIONS (5)
  - Skin warm [Recovered/Resolved]
  - Erythema [Recovering/Resolving]
  - Intentional dose omission [Unknown]
  - Intentional dose omission [Unknown]
  - Product physical issue [Unknown]

NARRATIVE: CASE EVENT DATE: 20221123
